FAERS Safety Report 24328710 (Version 1)
Quarter: 2024Q3

REPORT INFORMATION
  Report Type: Spontaneous
  Country: CN (occurrence: CN)
  Receive Date: 20240917
  Receipt Date: 20240917
  Transmission Date: 20241016
  Serious: Yes (Other)
  Sender: PFIZER
  Company Number: CN-PFIZER INC-PV202400120375

PATIENT
  Age: 63 Year
  Sex: Male

DRUGS (2)
  1. DACOMITINIB [Suspect]
     Active Substance: DACOMITINIB
     Indication: Lung adenocarcinoma stage IV
     Dosage: UNK
     Route: 048
     Dates: start: 202104, end: 202108
  2. DACOMITINIB [Suspect]
     Active Substance: DACOMITINIB
     Dosage: UNK
     Route: 048
     Dates: start: 20210818

REACTIONS (7)
  - Rash [Unknown]
  - Dry skin [Recovering/Resolving]
  - Lichen planus [Unknown]
  - Dermatitis acneiform [Recovered/Resolved]
  - Pruritus [Recovered/Resolved]
  - Sleep disorder [Unknown]
  - Intentional dose omission [Unknown]

NARRATIVE: CASE EVENT DATE: 20210501
